FAERS Safety Report 20736605 (Version 6)
Quarter: 2023Q1

REPORT INFORMATION
  Report Type: Spontaneous
  Country: US (occurrence: US)
  Receive Date: 20220421
  Receipt Date: 20230209
  Transmission Date: 20230417
  Serious: Yes (Hospitalization, Other)
  Sender: FDA-Public Use
  Company Number: US-PFIZER INC-202200597741

PATIENT
  Age: 84 Year
  Sex: Female

DRUGS (3)
  1. INLYTA [Suspect]
     Active Substance: AXITINIB
     Dosage: UNK
     Dates: start: 20220414
  2. INLYTA [Suspect]
     Active Substance: AXITINIB
     Dosage: 6 MG
     Dates: start: 20220416, end: 202207
  3. INLYTA [Suspect]
     Active Substance: AXITINIB
     Dosage: 2 MG, DAILY

REACTIONS (8)
  - Spinal fracture [Unknown]
  - Fall [Unknown]
  - Enteritis [Unknown]
  - Diarrhoea [Unknown]
  - Faeces soft [Unknown]
  - Diverticulum [Unknown]
  - Nausea [Unknown]
  - Vomiting [Unknown]

NARRATIVE: CASE EVENT DATE: 20220101
